FAERS Safety Report 24360709 (Version 1)
Quarter: 2024Q3

REPORT INFORMATION
  Report Type: Spontaneous
  Country: US (occurrence: US)
  Receive Date: 20240925
  Receipt Date: 20240925
  Transmission Date: 20241017
  Serious: Yes (Other)
  Sender: SANDOZ
  Company Number: US-SANDOZ-SDZ2024US081839

PATIENT
  Sex: Female

DRUGS (1)
  1. BRIMONIDINE [Suspect]
     Active Substance: BRIMONIDINE TARTRATE
     Indication: Glaucoma
     Dosage: UNK UNK, TID
     Route: 047

REACTIONS (5)
  - Blindness [Unknown]
  - Hallucination [Unknown]
  - Cataract [Unknown]
  - Gait disturbance [Unknown]
  - Memory impairment [Unknown]
